FAERS Safety Report 11021543 (Version 1)
Quarter: 2015Q2

REPORT INFORMATION
  Report Type: Spontaneous
  Country: US (occurrence: US)
  Receive Date: 20150413
  Receipt Date: 20150413
  Transmission Date: 20150821
  Serious: No
  Sender: FDA-Public Use
  Company Number: US-009507513-1504USA003452

PATIENT
  Age: 25 Year
  Sex: Female
  Weight: 68.27 kg

DRUGS (1)
  1. NEXPLANON [Suspect]
     Active Substance: ETONOGESTREL
     Indication: CONTRACEPTION
     Dosage: LEFT ARM, FREQUENCY: 3 YEARS
     Route: 059
     Dates: start: 20150206

REACTIONS (2)
  - Acne [Unknown]
  - Alopecia [Unknown]

NARRATIVE: CASE EVENT DATE: 20150220
